FAERS Safety Report 24940788 (Version 4)
Quarter: 2025Q4

REPORT INFORMATION
  Report Type: Report from Study
  Country: CO (occurrence: CO)
  Receive Date: 20250207
  Receipt Date: 20251029
  Transmission Date: 20260117
  Serious: Yes (Hospitalization, Other)
  Sender: REGENERON
  Company Number: CO-BAYER-2025A016425

PATIENT
  Sex: Female

DRUGS (4)
  1. EYLEA [Suspect]
     Active Substance: AFLIBERCEPT
     Indication: Diabetic retinal oedema
     Dosage: Q1MON, LEFT EYE, SOLUTION FOR INJECTION; 40 MG/ML
     Route: 031
     Dates: start: 20230215, end: 2023
  2. EYLEA [Suspect]
     Active Substance: AFLIBERCEPT
     Dosage: Q1MON, LEFT EYE, SOLUTION FOR INJECTION; 40 MG/ML
     Route: 031
     Dates: start: 20230701, end: 20230701
  3. EYLEA [Suspect]
     Active Substance: AFLIBERCEPT
     Dosage: Q1MON, LEFT EYE, SOLUTION FOR INJECTION; 40 MG/ML
     Route: 031
     Dates: start: 202409, end: 202409
  4. EYLEA [Suspect]
     Active Substance: AFLIBERCEPT
     Dosage: Q1MON, LEFT EYE, EVERY 4 TO 6 MONTHS (16 TO 24 WEEKS), SOLUTION FOR INJECTION; 40 MG/ML
     Route: 031
     Dates: start: 202411, end: 202503

REACTIONS (15)
  - Retinal oedema [Not Recovered/Not Resolved]
  - Macular hole [Not Recovered/Not Resolved]
  - Retinal detachment [Unknown]
  - Influenza like illness [Unknown]
  - Nasal congestion [Recovering/Resolving]
  - Cough [Recovering/Resolving]
  - Oropharyngeal pain [Recovering/Resolving]
  - Muscle strain [Recovering/Resolving]
  - Excessive eye blinking [Unknown]
  - Photopsia [Unknown]
  - Swelling of eyelid [Unknown]
  - Inappropriate schedule of product administration [Not Recovered/Not Resolved]
  - Product prescribing issue [Not Recovered/Not Resolved]
  - Product dose omission issue [Unknown]
  - Product supply issue [Unknown]

NARRATIVE: CASE EVENT DATE: 20240901
